FAERS Safety Report 8196531-1 (Version None)
Quarter: 2012Q1

REPORT INFORMATION
  Report Type: 
  Country: None (occurrence: None)
  Receive Date: 20120309
  Receipt Date: 20120227
  Transmission Date: 20120608
  Serious: Yes (Other)
  Sender: FDA-Public Use
  Company Number: US-JNJFOC-20120213892

PATIENT
  Sex: Female

DRUGS (8)
  1. REMICADE [Suspect]
     Indication: PSORIATIC ARTHROPATHY
     Route: 042
     Dates: start: 20120208
  2. LIPITOR [Suspect]
     Indication: BLOOD CHOLESTEROL INCREASED
     Route: 065
  3. SPIRONOLACTONE [Concomitant]
     Indication: HYPERTENSION
     Route: 048
     Dates: start: 20120213
  4. REMICADE [Suspect]
     Route: 042
     Dates: start: 20090101
  5. BENICAR [Suspect]
     Indication: HYPERTENSION
     Route: 065
     Dates: start: 20100101, end: 20120201
  6. SPIRONOLACTONE [Concomitant]
     Indication: BLOOD TESTOSTERONE ABNORMAL
     Route: 048
     Dates: start: 20120213
  7. ZETIA [Concomitant]
     Indication: BLOOD CHOLESTEROL INCREASED
     Route: 048
     Dates: start: 20090101
  8. METHOTREXATE [Suspect]
     Indication: PRODUCT USED FOR UNKNOWN INDICATION
     Route: 065
     Dates: end: 20111101

REACTIONS (15)
  - ARTHROPATHY [None]
  - BODY TEMPERATURE INCREASED [None]
  - MENOPAUSE [None]
  - BODY HEIGHT DECREASED [None]
  - NASOPHARYNGITIS [None]
  - CARDIAC MURMUR [None]
  - HAIR GROWTH ABNORMAL [None]
  - BLOOD TESTOSTERONE INCREASED [None]
  - BLOOD PRESSURE FLUCTUATION [None]
  - SLEEP APNOEA SYNDROME [None]
  - MUSCULOSKELETAL STIFFNESS [None]
  - BACK PAIN [None]
  - ALOPECIA [None]
  - HEPATIC ENZYME ABNORMAL [None]
  - SEASONAL ALLERGY [None]
